FAERS Safety Report 4539599-3 (Version None)
Quarter: 2004Q4

REPORT INFORMATION
  Report Type: 
  Country: None (occurrence: None)
  Receive Date: 20041228
  Receipt Date: 20041215
  Transmission Date: 20050328
  Serious: Yes (Hospitalization)
  Sender: FDA-Public Use
  Company Number: PHEH2004US13325

PATIENT
  Age: 59 Year
  Sex: Female

DRUGS (12)
  1. GLEEVEC [Suspect]
     Indication: CHRONIC MYELOID LEUKAEMIA
     Dosage: 400 MG, QD
     Route: 048
     Dates: start: 20040401
  2. ATROVENT [Concomitant]
  3. COMBIVENT [Concomitant]
  4. ALBUTEROL [Concomitant]
  5. ATIVAN [Concomitant]
  6. LASIX [Concomitant]
  7. SYNTHROID [Concomitant]
  8. TOFRANIL [Concomitant]
  9. LOPRESSOR [Concomitant]
  10. INSULIN [Concomitant]
  11. POTASSIUM [Concomitant]
  12. ACCUPRIL [Concomitant]

REACTIONS (16)
  - ASTHENIA [None]
  - CARDIAC FAILURE CONGESTIVE [None]
  - CHRONIC MYELOID LEUKAEMIA [None]
  - CHRONIC OBSTRUCTIVE AIRWAYS DISEASE [None]
  - CONFUSIONAL STATE [None]
  - DEPRESSION [None]
  - DIABETES MELLITUS [None]
  - DIALYSIS [None]
  - DISEASE PROGRESSION [None]
  - DYSPNOEA [None]
  - EJECTION FRACTION DECREASED [None]
  - FEELING ABNORMAL [None]
  - ISCHAEMIC CARDIOMYOPATHY [None]
  - LETHARGY [None]
  - RENAL FAILURE CHRONIC [None]
  - SOCIAL AVOIDANT BEHAVIOUR [None]
